FAERS Safety Report 13746935 (Version 2)
Quarter: 2017Q3

REPORT INFORMATION
  Report Type: Report from Study
  Country: CL (occurrence: CL)
  Receive Date: 20170712
  Receipt Date: 20170726
  Transmission Date: 20171127
  Serious: Yes (Other)
  Sender: FDA-Public Use
  Company Number: PHHY2016CL134494

PATIENT
  Age: 6 Year
  Sex: Male

DRUGS (2)
  1. OMNITROPE [Suspect]
     Active Substance: SOMATROPIN
     Dosage: 3.5 IU, QD
     Route: 058
     Dates: start: 20160904, end: 20160908
  2. OMNITROPE [Suspect]
     Active Substance: SOMATROPIN
     Indication: PRODUCT USED FOR UNKNOWN INDICATION
     Dosage: 3.6 IU, QD
     Route: 058
     Dates: start: 20160825

REACTIONS (5)
  - Urticaria [Unknown]
  - Hypotension [Recovered/Resolved]
  - Dysphagia [Unknown]
  - Hypersensitivity [Recovered/Resolved]
  - Hypersensitivity [Recovered/Resolved]

NARRATIVE: CASE EVENT DATE: 20160908
